FAERS Safety Report 5700785-8 (Version None)
Quarter: 2008Q2

REPORT INFORMATION
  Report Type: 
  Country: None (occurrence: None)
  Receive Date: 20080409
  Receipt Date: 20080409
  Transmission Date: 20081010
  Serious: Yes (Life-Threatening)
  Sender: FDA-Public Use
  Company Number: None

PATIENT
  Sex: Male
  Weight: 34.0198 kg

DRUGS (5)
  1. SINGULAIR [Suspect]
     Indication: ASTHMA
     Dosage: 5MG 1X/DAY PO
     Route: 048
     Dates: start: 20031004, end: 20080329
  2. SINGULAIR [Suspect]
     Indication: PNEUMONIA
     Dosage: 5MG 1X/DAY PO
     Route: 048
     Dates: start: 20031004, end: 20080329
  3. SINGULAIR [Suspect]
     Indication: RESPIRATORY DYSKINESIA
     Dosage: 5MG 1X/DAY PO
     Route: 048
     Dates: start: 20031004, end: 20080329
  4. ADVAIR HFA [Concomitant]
  5. XOPENEX [Concomitant]

REACTIONS (5)
  - AGGRESSION [None]
  - AGITATION [None]
  - CRYING [None]
  - DEPRESSION [None]
  - SUICIDAL IDEATION [None]
